FAERS Safety Report 13265572 (Version 1)
Quarter: 2017Q1

REPORT INFORMATION
  Report Type: Spontaneous
  Country: US (occurrence: US)
  Receive Date: 20170223
  Receipt Date: 20170223
  Transmission Date: 20170428
  Serious: No
  Sender: FDA-Public Use
  Company Number: US-NORTH CREEK PHARMACEUTICALS LLC-2016VTS00336

PATIENT
  Age: 78 Year
  Sex: Female
  Weight: 71.66 kg

DRUGS (2)
  1. DAPSONE. [Suspect]
     Active Substance: DAPSONE
     Indication: DERMATITIS HERPETIFORMIS
     Dosage: 50 MG, 1X/DAY
     Route: 048
     Dates: start: 20161017, end: 20161030
  2. DAPSONE. [Suspect]
     Active Substance: DAPSONE
     Dosage: 100 MG, 1X/DAY
     Route: 048
     Dates: start: 20161031, end: 20161107

REACTIONS (27)
  - Chromaturia [Recovered/Resolved]
  - Arthralgia [Recovered/Resolved]
  - Epistaxis [Recovered/Resolved]
  - Productive cough [Recovered/Resolved]
  - Peripheral coldness [Recovered/Resolved]
  - Muscle spasms [Recovered/Resolved]
  - Headache [Recovered/Resolved]
  - Anorectal disorder [Not Recovered/Not Resolved]
  - Dermatitis herpetiformis [Unknown]
  - Pruritus [Not Recovered/Not Resolved]
  - Yellow skin [Recovered/Resolved]
  - Bedridden [Recovered/Resolved]
  - Vulvovaginal pruritus [Not Recovered/Not Resolved]
  - Faeces discoloured [Recovered/Resolved]
  - Heart rate increased [Recovered/Resolved]
  - Pyrexia [Recovered/Resolved]
  - Decreased appetite [Recovered/Resolved]
  - Dysphonia [Recovered/Resolved]
  - Joint swelling [Recovered/Resolved]
  - Abasia [Recovered/Resolved]
  - Dry skin [Not Recovered/Not Resolved]
  - Erythema [Not Recovered/Not Resolved]
  - Chest pain [Recovered/Resolved]
  - Ear haemorrhage [Recovered/Resolved]
  - Confusional state [Recovered/Resolved]
  - Weight decreased [Recovered/Resolved]
  - Nervousness [Recovered/Resolved]

NARRATIVE: CASE EVENT DATE: 20161031
